FAERS Safety Report 12738466 (Version 2)
Quarter: 2017Q1

REPORT INFORMATION
  Report Type: Spontaneous
  Country: US (occurrence: US)
  Receive Date: 20160913
  Receipt Date: 20170112
  Transmission Date: 20170428
  Serious: No
  Sender: FDA-Public Use
  Company Number: US-PFIZER INC-2016421605

PATIENT
  Age: 72 Year

DRUGS (2)
  1. MARCAINE [Suspect]
     Active Substance: BUPIVACAINE HYDROCHLORIDE
     Indication: SPINAL ANAESTHESIA
     Dosage: 7.5 MG/ML, WITH DEXTROSE IN 2ML
  2. DEXTROSE. [Suspect]
     Active Substance: DEXTROSE
     Indication: SPINAL ANAESTHESIA
     Dosage: 82.5 MG/ML

REACTIONS (1)
  - Drug ineffective [Unknown]
